FAERS Safety Report 14481695 (Version 4)
Quarter: 2019Q1

REPORT INFORMATION
  Report Type: Spontaneous
  Country: US (occurrence: US)
  Receive Date: 20180202
  Receipt Date: 20190131
  Transmission Date: 20190417
  Serious: Yes (Hospitalization, Other)
  Sender: FDA-Public Use
  Company Number: US-PFIZER INC-2017351124

PATIENT
  Age: 4 Year
  Sex: Female
  Weight: 11 kg

DRUGS (4)
  1. GENOTROPIN [Suspect]
     Active Substance: SOMATROPIN
     Dosage: 0.5 MG, 1X/DAY
  2. GENOTROPIN [Suspect]
     Active Substance: SOMATROPIN
     Indication: BLOOD GROWTH HORMONE
     Dosage: 0.5 MG, ONCE DAILY
     Route: 058
  3. LEVETIRACETAM. [Concomitant]
     Active Substance: LEVETIRACETAM
     Indication: EPILEPSY
     Dosage: UNK
  4. GENOTROPIN [Suspect]
     Active Substance: SOMATROPIN
     Dosage: 0.8 MG, UNK (6 DAYS A WEEK)
     Dates: start: 20170802

REACTIONS (23)
  - Hypoglycaemia [Unknown]
  - Urobilinogen faeces decreased [Unknown]
  - Red cell distribution width increased [Unknown]
  - Lymphoblast count [Unknown]
  - Urine analysis abnormal [Unknown]
  - Influenza [Unknown]
  - Lymphocyte count decreased [Unknown]
  - Device issue [Unknown]
  - Haemoglobin decreased [Unknown]
  - Blood alkaline phosphatase increased [Unknown]
  - White blood cell count decreased [Unknown]
  - Red blood cell count decreased [Unknown]
  - Seizure [Unknown]
  - Product dose omission [Unknown]
  - Red blood cell count increased [Unknown]
  - Mean cell volume increased [Unknown]
  - Neutrophil percentage increased [Unknown]
  - Otitis media [Unknown]
  - Treatment noncompliance [Unknown]
  - Blood potassium increased [Unknown]
  - C-reactive protein increased [Unknown]
  - Incorrect dose administered [Unknown]
  - Monocyte count increased [Unknown]
